FAERS Safety Report 8048409-1 (Version None)
Quarter: 2012Q1

REPORT INFORMATION
  Report Type: 
  Country: None (occurrence: None)
  Receive Date: 20120117
  Receipt Date: 20120113
  Transmission Date: 20120608
  Serious: No
  Sender: FDA-Public Use
  Company Number: US-PFIZER INC-2012011023

PATIENT
  Sex: Female
  Weight: 122 kg

DRUGS (12)
  1. LYRICA [Concomitant]
     Dosage: 150 MG, 2X/DAY
  2. LOSARTAN POTASSIUM [Concomitant]
     Dosage: ^100/25^ MG DAILY
  3. LANSOPRAZOLE [Concomitant]
     Dosage: 30 MG, DAILY
  4. CYCLOBENZAPRINE HYDROCHLORIDE [Concomitant]
     Dosage: 10 MG DAILY OR TWO TIMES A DAY
  5. FLAVOXATE [Concomitant]
     Dosage: 100 MG, 3X/DAY
  6. HYDROCODONE [Concomitant]
     Dosage: 5/500 MG DAILY OR TWO TIMES A DAY
  7. JANUVIA [Concomitant]
     Dosage: 100 MG, DAILY
  8. LIPITOR [Suspect]
     Indication: BLOOD CHOLESTEROL INCREASED
     Dosage: 80 MG, DAILY
     Route: 048
  9. NOVOLIN 70/30 [Concomitant]
     Dosage: UNK, 2X/DAY
  10. METFORMIN [Concomitant]
     Dosage: 1000 MG, 2X/DAY
  11. QUERCETIN [Concomitant]
     Dosage: 10 MG, DAILY
  12. CARTIA XT [Concomitant]
     Dosage: 240 MG, DAILY

REACTIONS (2)
  - SWELLING [None]
  - BLISTER [None]
